FAERS Safety Report 11563589 (Version 1)
Quarter: 2015Q3

REPORT INFORMATION
  Report Type: Spontaneous
  Country: US (occurrence: US)
  Receive Date: 20150916
  Receipt Date: 20150916
  Transmission Date: 20151125
  Serious: No
  Sender: FDA-Public Use
  Company Number: US-ELI_LILLY_AND_COMPANY-US200902001883

PATIENT
  Age: 77 Year
  Sex: Female

DRUGS (6)
  1. LISINOPRIL. [Concomitant]
     Active Substance: LISINOPRIL
  2. FISH OIL [Concomitant]
     Active Substance: FISH OIL
  3. TRAMADOL. [Concomitant]
     Active Substance: TRAMADOL
  4. GLUCOSAMINE [Concomitant]
     Active Substance: GLUCOSAMINE
  5. FORTEO [Suspect]
     Active Substance: TERIPARATIDE
     Indication: OSTEOPOROSIS
     Dosage: 20 UG, DAILY (1/D)
     Route: 058
     Dates: start: 20090205
  6. CRESTOR [Concomitant]
     Active Substance: ROSUVASTATIN CALCIUM

REACTIONS (7)
  - Thirst [Unknown]
  - Abdominal pain [Unknown]
  - Irregular breathing [Unknown]
  - Hypertension [Unknown]
  - Musculoskeletal pain [Unknown]
  - Neck pain [Unknown]
  - Flushing [Unknown]

NARRATIVE: CASE EVENT DATE: 20090205
